FAERS Safety Report 4637851-4 (Version None)
Quarter: 2005Q2

REPORT INFORMATION
  Report Type: 
  Country: None (occurrence: None)
  Receive Date: 20050418
  Receipt Date: 20050406
  Transmission Date: 20051028
  Serious: Yes (Life-Threatening)
  Sender: FDA-Public Use
  Company Number: CN-JNJFOC-20050400713

PATIENT
  Age: 53 Year
  Sex: Female

DRUGS (6)
  1. TRAMADOL HCL [Suspect]
     Indication: POSTOPERATIVE ANALGESIA
     Route: 042
  2. FENTANYL [Suspect]
     Indication: POSTOPERATIVE ANALGESIA
     Route: 042
  3. DROPERIDOL [Suspect]
     Indication: POSTOPERATIVE ANALGESIA
     Route: 042
  4. DOLANTIN [Concomitant]
     Route: 065
  5. FARGAN [Concomitant]
     Route: 065
  6. KETAMINE HCL [Concomitant]
     Route: 065

REACTIONS (1)
  - MULTI-ORGAN FAILURE [None]
